FAERS Safety Report 18322972 (Version 1)
Quarter: 2020Q3

REPORT INFORMATION
  Report Type: Spontaneous
  Country: CA (occurrence: CA)
  Receive Date: 20200928
  Receipt Date: 20200928
  Transmission Date: 20201103
  Serious: Yes (Other)
  Sender: FDA-Public Use
  Company Number: CA-JNJFOC-20200934944

PATIENT
  Age: 25 Year
  Sex: Female
  Weight: 56 kg

DRUGS (2)
  1. REMICADE [Suspect]
     Active Substance: INFLIXIMAB
     Indication: ANKYLOSING SPONDYLITIS
     Route: 042
  2. ACETYLSALICYLIC ACID, CAFFEINE AND CODEINE PH [Concomitant]
     Route: 048

REACTIONS (12)
  - Ear discomfort [Recovered/Resolved]
  - Musculoskeletal discomfort [Recovered/Resolved]
  - Nausea [Recovered/Resolved]
  - Joint stiffness [Recovered/Resolved]
  - Nasal congestion [Recovered/Resolved]
  - Road traffic accident [Recovered/Resolved]
  - Tissue injury [Recovered/Resolved]
  - Inappropriate schedule of product administration [Recovered/Resolved]
  - Off label use [Recovered/Resolved]
  - Pain in jaw [Recovered/Resolved]
  - Throat tightness [Recovered/Resolved]
  - Infusion related reaction [Recovered/Resolved]
